FAERS Safety Report 15287822 (Version 1)
Quarter: 2018Q3

REPORT INFORMATION
  Report Type: Spontaneous
  Country: FR (occurrence: FR)
  Receive Date: 20180817
  Receipt Date: 20180817
  Transmission Date: 20181010
  Serious: Yes (Other)
  Sender: FDA-Public Use
  Company Number: FR-AUROBINDO-AUR-APL-2018-041590

PATIENT
  Age: 66 Year
  Sex: Male

DRUGS (3)
  1. XARELTO [Concomitant]
     Active Substance: RIVAROXABAN
     Indication: PRODUCT USED FOR UNKNOWN INDICATION
     Dosage: 1 DAILY
     Route: 048
  2. BISOPROLOL FILM?COATED TABLETS [Suspect]
     Active Substance: BISOPROLOL
     Dosage: 5 MILLIGRAM, DAILY
     Route: 065
     Dates: start: 201801, end: 201805
  3. BISOPROLOL FILM?COATED TABLETS [Suspect]
     Active Substance: BISOPROLOL
     Indication: CARDIAC FLUTTER
     Dosage: 5 MILLIGRAM, DAILY, (START DATE: NOV 2017 OR DEC 2017)
     Route: 065
     Dates: start: 2017, end: 201801

REACTIONS (9)
  - Disturbance in attention [Recovered/Resolved]
  - Balance disorder [Recovered/Resolved]
  - Intentional product misuse [Recovered/Resolved]
  - Dyspnoea [Recovered/Resolved]
  - Dizziness [Recovered/Resolved]
  - Fatigue [Recovered/Resolved]
  - Heart rate increased [Recovered/Resolved]
  - Intentional product use issue [Recovered/Resolved]
  - Confusional state [Recovered/Resolved]

NARRATIVE: CASE EVENT DATE: 2017
